FAERS Safety Report 12388014 (Version 2)
Quarter: 2016Q2

REPORT INFORMATION
  Report Type: Spontaneous
  Country: US (occurrence: US)
  Receive Date: 20160520
  Receipt Date: 20160617
  Transmission Date: 20160815
  Serious: Yes (Other)
  Sender: FDA-Public Use
  Company Number: US-009507513-1605USA006415

PATIENT
  Age: 61 Year
  Sex: Male
  Weight: 74.83 kg

DRUGS (6)
  1. MAGNESIUM (UNSPECIFIED) [Concomitant]
     Active Substance: MAGNESIUM
     Dosage: 250 MG/DAY
  2. CLONAZEPAM. [Concomitant]
     Active Substance: CLONAZEPAM
     Indication: INSOMNIA
     Dosage: 1.0 MG/DAY
  3. VITAMINS (UNSPECIFIED) [Concomitant]
     Active Substance: VITAMINS
     Dosage: FOR MEN OVER AGE 50
  4. DOXEPIN HYDROCHLORIDE. [Concomitant]
     Active Substance: DOXEPIN HYDROCHLORIDE
     Indication: INSOMNIA
     Dosage: 75 MG/DAY
  5. BELSOMRA [Suspect]
     Active Substance: SUVOREXANT
     Indication: INSOMNIA
     Dosage: 1 PILL AT BEDTIME
     Route: 048
     Dates: start: 20150821, end: 20150821
  6. MELATONIN [Concomitant]
     Active Substance: MELATONIN
     Dosage: 3 MG/DAY

REACTIONS (10)
  - Apnoea [Recovering/Resolving]
  - Muscle spasms [Recovering/Resolving]
  - Myalgia [Recovering/Resolving]
  - Headache [Recovering/Resolving]
  - Muscle contractions involuntary [Recovering/Resolving]
  - Hallucination [Recovering/Resolving]
  - Feeling abnormal [Recovering/Resolving]
  - Insomnia [Recovering/Resolving]
  - Fatigue [Recovering/Resolving]
  - No therapeutic response [Recovering/Resolving]

NARRATIVE: CASE EVENT DATE: 20150821
